FAERS Safety Report 6638065-9 (Version None)
Quarter: 2010Q1

REPORT INFORMATION
  Report Type: 
  Country: None (occurrence: None)
  Receive Date: 20100301
  Receipt Date: 20090127
  Transmission Date: 20100710
  Serious: Yes (Hospitalization)
  Sender: FDA-Public Use
  Company Number: RB-8940-2009

PATIENT
  Age: 45 Year
  Sex: Female

DRUGS (4)
  1. SUBOXONE [Suspect]
     Indication: DRUG DEPENDENCE
     Dosage: 8 MG TID SUBLINGUAL
     Route: 060
     Dates: start: 20081118, end: 20090101
  2. METOPROLOL [Concomitant]
  3. AMILORIDE HYDROCHLORIDE [Concomitant]
  4. PRILOSEC [Concomitant]

REACTIONS (1)
  - TENDON RUPTURE [None]
